FAERS Safety Report 15656778 (Version 1)
Quarter: 2018Q4

REPORT INFORMATION
  Report Type: Report from Study
  Country: US (occurrence: US)
  Receive Date: 20181126
  Receipt Date: 20181126
  Transmission Date: 20190205
  Serious: Yes (Hospitalization, Other)
  Sender: FDA-Public Use
  Company Number: US-GILEAD-2018-0375707

PATIENT
  Age: 40 Year
  Sex: Female

DRUGS (16)
  1. TOBRAMYCIN. [Suspect]
     Active Substance: TOBRAMYCIN
     Indication: CYSTIC FIBROSIS
     Dosage: USE 1 UNIT DOSE IN NEBULIZER BID FOR 28 DAYS ON AND 28 DAYS OFF
     Route: 055
     Dates: start: 20181031
  2. ACYCLOVIR [ACICLOVIR] [Concomitant]
     Active Substance: ACYCLOVIR
  3. PULMOZYME [Suspect]
     Active Substance: DORNASE ALFA
     Indication: CYSTIC FIBROSIS
     Dosage: IH=NHALE 1 VIAL VIA NEBULIZER ONCE DAILY
     Route: 055
     Dates: start: 20161108
  4. LEVOTHYROXIN [Concomitant]
     Active Substance: LEVOTHYROXINE
  5. PREDNISONE. [Concomitant]
     Active Substance: PREDNISONE
  6. ELIQUIS [Concomitant]
     Active Substance: APIXABAN
  7. NORTRIPTYLINE [Concomitant]
     Active Substance: NORTRIPTYLINE
  8. PERTZYE [Suspect]
     Active Substance: PANCRELIPASE AMYLASE\PANCRELIPASE LIPASE\PANCRELIPASE PROTEASE
     Indication: CYSTIC FIBROSIS
     Dosage: TAKE 8 TO 9 CAPS PO WITH MEALS AND TAKE 6 CAPS PO WITH SNACKS
     Route: 048
     Dates: start: 20160102
  9. SODIUM CHLORIDE. [Suspect]
     Active Substance: SODIUM CHLORIDE
     Indication: CYSTIC FIBROSIS
     Dosage: INHALE 1 VIAL VIA NEB EVERY 12 HOURS
     Route: 055
     Dates: start: 20160108
  10. LEVALBUTEROL [LEVOSALBUTAMOL] [Concomitant]
  11. NOVOLOG [Concomitant]
     Active Substance: INSULIN ASPART
  12. ROPINIROLE. [Concomitant]
     Active Substance: ROPINIROLE
  13. AZTREONAM LYSINE [Suspect]
     Active Substance: AZTREONAM LYSINE
     Indication: CYSTIC FIBROSIS
     Dosage: 1 VIAL TID, EVERY OTHER MONTH
     Route: 055
     Dates: start: 20160310
  14. ADVAIR HFA [Concomitant]
     Active Substance: FLUTICASONE PROPIONATE\SALMETEROL XINAFOATE
  15. LINZESS [Concomitant]
     Active Substance: LINACLOTIDE
  16. ESOMEPRA [Concomitant]
     Active Substance: ESOMEPRAZOLE

REACTIONS (1)
  - Lung disorder [Unknown]

NARRATIVE: CASE EVENT DATE: 20181105
